FAERS Safety Report 9799311 (Version 2)
Quarter: 2014Q1

REPORT INFORMATION
  Report Type: Spontaneous
  Country: US (occurrence: US)
  Receive Date: 20140106
  Receipt Date: 20140321
  Transmission Date: 20141002
  Serious: No
  Sender: FDA-Public Use
  Company Number: US-009507513-1401USA001114

PATIENT
  Sex: Female
  Weight: 90 kg

DRUGS (7)
  1. NASONEX [Suspect]
     Dosage: 2 SPRAYS ONCE A DAY, NASONEX AEROSOL  (EA)
     Route: 045
     Dates: start: 2011
  2. IRON (UNSPECIFIED) [Concomitant]
  3. ZOLOFT [Concomitant]
  4. ZYRTEC [Concomitant]
  5. RISPERDAL [Concomitant]
  6. CLEXANE (SURICLONE) [Concomitant]
  7. CONCERTA [Concomitant]

REACTIONS (3)
  - Drug dose omission [Unknown]
  - Product quality issue [Unknown]
  - No adverse event [Unknown]
